FAERS Safety Report 4308855-6 (Version None)
Quarter: 2004Q1

REPORT INFORMATION
  Report Type: 
  Country: None (occurrence: None)
  Receive Date: 20040227
  Receipt Date: 20040224
  Transmission Date: 20041129
  Serious: Yes (Hospitalization)
  Sender: FDA-Public Use
  Company Number: MK200402-0235-1

PATIENT
  Age: 23 Year
  Sex: Male

DRUGS (9)
  1. ANAFRANIL CAP [Suspect]
     Dates: start: 19990328, end: 19990328
  2. MELLERIL [Suspect]
     Dates: start: 19990328
  3. LEXOTAN [Suspect]
     Dates: start: 20030328
  4. PROMETHAZINE HCL [Suspect]
     Dates: start: 19990328
  5. VITAMIN A [Suspect]
     Dates: start: 19990328
  6. HIRNAMIN [Suspect]
     Dates: start: 19990328
  7. ISOMYTAL [Suspect]
     Dates: start: 19990328
  8. HALCION [Suspect]
     Dates: start: 19990328
  9. RITALIN [Suspect]
     Dates: start: 19990328

REACTIONS (4)
  - CARDIAC ARREST [None]
  - LOSS OF CONSCIOUSNESS [None]
  - PANCREATIC PSEUDOCYST [None]
  - PANCREATITIS ACUTE [None]
